FAERS Safety Report 8530494-1 (Version None)
Quarter: 2012Q3

REPORT INFORMATION
  Report Type: 
  Country: None (occurrence: None)
  Receive Date: 20120723
  Receipt Date: 20120717
  Transmission Date: 20120928
  Serious: Yes (Life-Threatening, Hospitalization)
  Sender: FDA-Public Use
  Company Number: US-CELGENEUS-163-21880-11102585

PATIENT
  Sex: Male

DRUGS (21)
  1. IRON [Concomitant]
     Route: 065
  2. LOVAZA [Concomitant]
     Route: 065
  3. BACTRIM [Concomitant]
     Indication: PROPHYLAXIS
     Route: 065
  4. VALTREX [Concomitant]
     Indication: PROPHYLAXIS
     Route: 065
  5. REVLIMID [Suspect]
     Dosage: 25 MILLIGRAM
     Route: 048
     Dates: start: 20111001
  6. DECADRON [Suspect]
     Indication: MULTIPLE MYELOMA
     Dosage: 5.7143 MILLIGRAM
     Route: 065
     Dates: start: 20110702
  7. SYNTHROID [Concomitant]
     Indication: HYPOTHYROIDISM
     Dosage: 200 MICROGRAM
     Route: 065
  8. PROVENTIL [Concomitant]
     Route: 065
  9. AMBIEN [Concomitant]
     Route: 048
  10. VITAMIN D [Concomitant]
     Route: 065
  11. REVLIMID [Suspect]
     Indication: MULTIPLE MYELOMA
     Dosage: 25 MILLIGRAM
     Route: 048
     Dates: start: 20110501, end: 20110816
  12. GLUCOSAMINE [Concomitant]
     Route: 065
  13. HALOG [Concomitant]
     Route: 065
  14. STEROIDS [Concomitant]
     Route: 065
  15. ACIPHEX [Concomitant]
     Dosage: 20 MILLIGRAM
     Route: 065
  16. B-50 COMPLEX [Concomitant]
     Route: 065
  17. PROVENTIL GENTLEHALER [Concomitant]
     Route: 065
  18. SYMBICORT [Concomitant]
     Dosage: 160
     Route: 065
  19. ZYRTEC [Concomitant]
     Dosage: 10 MILLIGRAM
     Route: 048
  20. ASPIRIN [Concomitant]
     Dosage: 325 MILLIGRAM
     Route: 065
  21. MULTI-VITAMINS [Concomitant]
     Route: 065

REACTIONS (2)
  - DIVERTICULAR PERFORATION [None]
  - RASH [None]
